FAERS Safety Report 16189141 (Version 1)
Quarter: 2019Q2

REPORT INFORMATION
  Report Type: Spontaneous
  Country: US (occurrence: US)
  Receive Date: 20190411
  Receipt Date: 20190411
  Transmission Date: 20190711
  Serious: Yes (Other)
  Sender: FDA-Public Use
  Company Number: None

PATIENT
  Age: 55 Year
  Sex: Male
  Weight: 121.5 kg

DRUGS (1)
  1. HYDROCODONE BITARTRATE AND ACETAMINOPHEN [Suspect]
     Active Substance: ACETAMINOPHEN\HYDROCODONE BITARTRATE
     Indication: ARTHRITIS
     Dosage: ?          QUANTITY:180 TABLET(S);?
     Route: 048
     Dates: start: 20150915, end: 20181001

REACTIONS (7)
  - Pain [None]
  - Headache [None]
  - Hyperhidrosis [None]
  - Insomnia [None]
  - Product formulation issue [None]
  - Product packaging quantity issue [None]
  - Lacrimation increased [None]

NARRATIVE: CASE EVENT DATE: 20181101
